FAERS Safety Report 12248588 (Version 1)
Quarter: 2016Q2

REPORT INFORMATION
  Report Type: Spontaneous
  Country: US (occurrence: None)
  Receive Date: 20160407
  Receipt Date: 20160407
  Transmission Date: 20160815
  Serious: Yes (Hospitalization, Disabling)
  Sender: FDA-Public Use
  Company Number: None

PATIENT
  Age: 58 Year
  Sex: Female
  Weight: 74.84 kg

DRUGS (14)
  1. PANTOPRAZOLE [Concomitant]
     Active Substance: PANTOPRAZOLE SODIUM
  2. ESTRADIAL [Concomitant]
  3. LUTEIN [Concomitant]
     Active Substance: LUTEIN
  4. COPAXONE [Suspect]
     Active Substance: GLATIRAMER ACETATE
     Indication: MULTIPLE SCLEROSIS
     Route: 030
     Dates: start: 20160309, end: 20160314
  5. CITALOPRAM [Concomitant]
     Active Substance: CITALOPRAM HYDROBROMIDE
  6. VENTOLIN [Concomitant]
     Active Substance: ALBUTEROL SULFATE
  7. KRILL OIL [Concomitant]
     Active Substance: DIETARY SUPPLEMENT
  8. B-COMPLEX VITAMIN [Concomitant]
  9. SYMBICORT [Concomitant]
     Active Substance: BUDESONIDE\FORMOTEROL FUMARATE DIHYDRATE
  10. THIAMIN [Concomitant]
     Active Substance: THIAMINE
  11. SPIRIVA [Concomitant]
     Active Substance: TIOTROPIUM BROMIDE MONOHYDRATE
  12. AMLODAPINE [Concomitant]
  13. MULTIVITAMIN [Concomitant]
     Active Substance: VITAMINS
  14. CALCIUM+D [Concomitant]

REACTIONS (5)
  - Injection site erythema [None]
  - Gait disturbance [None]
  - Blood potassium decreased [None]
  - Blood electrolytes abnormal [None]
  - Injection site swelling [None]

NARRATIVE: CASE EVENT DATE: 20160315
